FAERS Safety Report 4313775-7 (Version None)
Quarter: 2004Q1

REPORT INFORMATION
  Report Type: 
  Country: None (occurrence: None)
  Receive Date: 20040305
  Receipt Date: 20040225
  Transmission Date: 20041129
  Serious: Yes (Hospitalization)
  Sender: FDA-Public Use
  Company Number: HQWYE427327FEB04

PATIENT
  Age: 36 Year
  Sex: Female

DRUGS (2)
  1. RAPAMUNE [Suspect]
     Indication: INTESTINAL TRANSPLANT
     Dosage: SEE IMAGE
     Route: 048
  2. TACROLIMUS (TACROLIMUS, ) [Suspect]
     Indication: INTESTINAL TRANSPLANT
     Dosage: SEE IMAGE
     Route: 048

REACTIONS (2)
  - THROMBOTIC MICROANGIOPATHY [None]
  - TRANSPLANT REJECTION [None]
